FAERS Safety Report 10017389 (Version 2)
Quarter: 2014Q1

REPORT INFORMATION
  Report Type: Spontaneous
  Country: US (occurrence: US)
  Receive Date: 20140318
  Receipt Date: 20140326
  Transmission Date: 20141002
  Serious: No
  Sender: FDA-Public Use
  Company Number: US-PFIZER INC-2014072068

PATIENT
  Sex: Female

DRUGS (2)
  1. FLUCONAZOLE [Suspect]
     Dosage: UNK
  2. XANAX [Concomitant]
     Dosage: 1 DF, SINGLE

REACTIONS (1)
  - Diarrhoea [Unknown]
